FAERS Safety Report 8154882-0 (Version None)
Quarter: 2012Q1

REPORT INFORMATION
  Report Type: 
  Country: None (occurrence: None)
  Receive Date: 20120221
  Receipt Date: 20120215
  Transmission Date: 20120608
  Serious: Yes (Death)
  Sender: FDA-Public Use
  Company Number: PHHY2012AR013332

PATIENT
  Sex: Female

DRUGS (1)
  1. EXELON [Suspect]
     Indication: MEMORY IMPAIRMENT
     Dosage: 4.6 MG, (5 CM), 1 PATCH DAILY
     Route: 062
     Dates: start: 20110101, end: 20110401

REACTIONS (3)
  - DEATH [None]
  - AGGRESSION [None]
  - HALLUCINATION [None]
